FAERS Safety Report 9492164 (Version 2)
Quarter: 2013Q4

REPORT INFORMATION
  Report Type: Spontaneous
  Country: US (occurrence: US)
  Receive Date: 20130830
  Receipt Date: 20131008
  Transmission Date: 20140711
  Serious: No
  Sender: FDA-Public Use
  Company Number: US-PFIZER INC-2013249654

PATIENT
  Age: 57 Year
  Sex: Female

DRUGS (2)
  1. XELJANZ [Suspect]
     Dosage: 1 DF, 2X/DAY
     Route: 048
     Dates: start: 20130729, end: 20130827
  2. HYDROXYCHLOROQUINE [Concomitant]
     Dosage: UNK
     Dates: start: 20091215

REACTIONS (2)
  - Abdominal pain upper [Recovered/Resolved]
  - Chest discomfort [Recovered/Resolved]
